FAERS Safety Report 8952509 (Version 2)
Quarter: 2013Q1

REPORT INFORMATION
  Report Type: Spontaneous
  Country: DE (occurrence: DE)
  Receive Date: 20121205
  Receipt Date: 20130103
  Transmission Date: 20140127
  Serious: Yes (Other)
  Sender: FDA-Public Use
  Company Number: DE-RANBAXY-2012RR-62705

PATIENT
  Age: 51 Year
  Sex: 0

DRUGS (14)
  1. ASPIRIN [Suspect]
     Indication: ANTIPLATELET THERAPY
     Dosage: 100 MG/DAY
     Route: 065
  2. CLOPIDOGREL [Interacting]
     Indication: ANTIPLATELET THERAPY
     Dosage: 600 MG
     Route: 065
  3. CLOPIDOGREL [Interacting]
     Indication: ANTIPLATELET THERAPY
     Dosage: 75 MG/DAY
     Route: 065
  4. IBUPROFEN [Suspect]
     Indication: PRODUCT USED FOR UNKNOWN INDICATION
     Dosage: UNK
     Route: 048
  5. PRASUGREL [Concomitant]
     Indication: ANTIPLATELET THERAPY
     Dosage: 10 NG, QD
     Route: 065
  6. ENOXAPARIN SODIUM [Concomitant]
     Indication: PRODUCT USED FOR UNKNOWN INDICATION
     Dosage: 70 MG, BID
     Route: 065
  7. BISOPROLOL [Concomitant]
     Indication: PRODUCT USED FOR UNKNOWN INDICATION
     Dosage: UNK
     Route: 065
  8. ROPIVACAINE [Concomitant]
     Indication: PAIN
     Dosage: 6 ML, (0.375%)
     Route: 065
  9. OXYCODONE [Concomitant]
     Indication: PRODUCT USED FOR UNKNOWN INDICATION
     Dosage: UNK
     Route: 065
  10. SUFENTANIL [Concomitant]
     Indication: PAIN
     Dosage: 5 ?G, UNK
     Route: 065
  11. PROPOFOL [Concomitant]
     Indication: GENERAL ANAESTHESIA
     Dosage: UNK
     Route: 065
  12. CISATRACURIUM [Concomitant]
     Indication: GENERAL ANAESTHESIA
     Dosage: UNK
     Route: 065
  13. DESFLURAN [Concomitant]
     Indication: GENERAL ANAESTHESIA
     Dosage: UNK
     Route: 065
  14. SUFENTANIL [Concomitant]
     Indication: GENERAL ANAESTHESIA
     Dosage: UNK
     Route: 065

REACTIONS (3)
  - Drug ineffective [Recovered/Resolved]
  - Drug interaction [Unknown]
  - Drug interaction [Recovered/Resolved]
